FAERS Safety Report 16365798 (Version 5)
Quarter: 2021Q2

REPORT INFORMATION
  Report Type: Report from Study
  Country: GB (occurrence: GB)
  Receive Date: 20190529
  Receipt Date: 20210603
  Transmission Date: 20210716
  Serious: Yes (Death, Hospitalization, Other)
  Sender: FDA-Public Use
  Company Number: GB-ASPEN-GLO2015GB016676

PATIENT

DRUGS (16)
  1. MOVICOL [Concomitant]
     Active Substance: POLYETHYLENE GLYCOL 3350\POTASSIUM CHLORIDE\SODIUM BICARBONATE\SODIUM CHLORIDE
     Indication: CONSTIPATION
     Dosage: UNK
     Route: 048
     Dates: start: 20151102
  2. ADCAL D3 [Concomitant]
     Active Substance: CALCIUM CARBONATE\CHOLECALCIFEROL
     Indication: OSTEOPOROSIS PROPHYLAXIS
     Dosage: 1 UNK, QD
     Route: 048
     Dates: start: 20151102
  3. GLIMEPIRIDE. [Concomitant]
     Active Substance: GLIMEPIRIDE
     Indication: DIABETES MELLITUS
     Dosage: 1 MG
     Route: 048
     Dates: start: 20151102
  4. COTRIMOXAZOLE [Concomitant]
     Active Substance: SULFAMETHOXAZOLE\TRIMETHOPRIM
     Indication: INFECTION PROPHYLAXIS
     Dosage: 960 MG, QD
     Route: 048
     Dates: start: 20151102
  5. FINASTERIDE. [Concomitant]
     Active Substance: FINASTERIDE
     Indication: PROSTATITIS
     Dosage: 5 MG
     Route: 048
     Dates: start: 20151102
  6. DEXAMETHASONE. [Suspect]
     Active Substance: DEXAMETHASONE
     Indication: PLASMA CELL MYELOMA
     Dosage: 32 UNK
     Route: 065
     Dates: start: 20150926, end: 20151018
  7. WARFARIN [Concomitant]
     Active Substance: WARFARIN
     Indication: ANTICOAGULANT THERAPY
     Dosage: UNK
     Route: 065
  8. ONDANSETRON [Concomitant]
     Active Substance: ONDANSETRON
     Indication: NAUSEA
     Dosage: 16 MG, QD
     Route: 048
     Dates: start: 20151102
  9. POMALIDOMIDE [Suspect]
     Active Substance: POMALIDOMIDE
     Dosage: 3 MG (63 MG EVERY 28 DAYS).
     Route: 048
     Dates: start: 20151022, end: 20151102
  10. LANSOPRAZOLE. [Concomitant]
     Active Substance: LANSOPRAZOLE
     Indication: PRODUCT USED FOR UNKNOWN INDICATION
     Dosage: 30 MG, QD
     Route: 048
  11. SIMVASTATIN. [Concomitant]
     Active Substance: SIMVASTATIN
     Indication: BLOOD CHOLESTEROL
     Dosage: 200 MG
     Route: 048
     Dates: start: 20151102
  12. POMALIDOMIDE [Suspect]
     Active Substance: POMALIDOMIDE
     Indication: PLASMA CELL MYELOMA
     Dosage: 4 MG (84 MG EVERY 28 DAYS).
     Route: 048
     Dates: start: 20150925, end: 20151015
  13. BISOPROLOL [Concomitant]
     Active Substance: BISOPROLOL
     Indication: DRUG THERAPY
     Dosage: 5 MG
     Route: 048
     Dates: start: 20151102
  14. GABAPENTIN. [Concomitant]
     Active Substance: GABAPENTIN
     Indication: PAIN
     Dosage: 600 MG
     Route: 048
     Dates: start: 20151102
  15. DEXAMETHASONE. [Suspect]
     Active Substance: DEXAMETHASONE
     Dosage: 32 MG EVERY 28 DAYS
     Route: 065
     Dates: start: 20151022, end: 20151102
  16. COCODAMOL [Concomitant]
     Active Substance: ACETAMINOPHEN\CODEINE PHOSPHATE
     Indication: PAIN
     Dosage: 30/500
     Route: 048
     Dates: start: 20151102

REACTIONS (8)
  - Acute kidney injury [Fatal]
  - Neutropenia [Fatal]
  - Thrombocytopenia [Fatal]
  - Plasma cell myeloma [Fatal]
  - Fluid retention [Fatal]
  - General physical health deterioration [Fatal]
  - Anaemia [Fatal]
  - Peripheral sensory neuropathy [Fatal]

NARRATIVE: CASE EVENT DATE: 201510
